FAERS Safety Report 26011427 (Version 1)
Quarter: 2025Q4

REPORT INFORMATION
  Report Type: Spontaneous
  Country: US (occurrence: None)
  Receive Date: 20251106
  Receipt Date: 20251106
  Transmission Date: 20260119
  Serious: Yes (Other)
  Sender: FDA-CTU
  Company Number: None

PATIENT
  Age: 24 Year
  Sex: Female
  Weight: 58 kg

DRUGS (1)
  1. MEDROXYPROGESTERONE ACETATE [Suspect]
     Active Substance: MEDROXYPROGESTERONE ACETATE
     Dosage: OTHER FREQUENCY : EVERY 3 MONTHS;?
     Route: 030
     Dates: start: 20241118

REACTIONS (3)
  - Fluid retention [None]
  - Haematoma [None]
  - Abscess [None]

NARRATIVE: CASE EVENT DATE: 20250930
